FAERS Safety Report 8177436-9 (Version None)
Quarter: 2012Q1

REPORT INFORMATION
  Report Type: 
  Country: None (occurrence: None)
  Receive Date: 20120301
  Receipt Date: 20120224
  Transmission Date: 20120608
  Serious: Yes (Other)
  Sender: FDA-Public Use
  Company Number: US-BAYER-2012-020109

PATIENT
  Age: 43 Year
  Sex: Male
  Weight: 42 kg

DRUGS (11)
  1. CALCIUM CHLORIDE [Concomitant]
     Dosage: UNK
     Dates: start: 20030904, end: 20030904
  2. SODIUM BICARBONATE [Concomitant]
     Dosage: 50 MEQ, UNK
     Dates: start: 20030904, end: 20030904
  3. MAGNESIUM SULFATE [Concomitant]
     Dosage: UNK
     Dates: start: 20030904, end: 20030904
  4. LIDOCAINE [Concomitant]
     Dosage: UNK
     Dates: start: 20030904, end: 20030904
  5. MANNITOL [Concomitant]
     Dosage: 12.5 G, UNK
     Dates: start: 20030904, end: 20030904
  6. FENTANYL [Concomitant]
     Dosage: UNK
     Dates: start: 20030904, end: 20030904
  7. PROTAMINE SULFATE [Concomitant]
     Dosage: UNK
     Dates: start: 20030914, end: 20030914
  8. NIMBEX [Concomitant]
     Dosage: UNK
     Dates: start: 20030904, end: 20030904
  9. TRASYLOL [Suspect]
     Dosage: 200ML LOAD FOLLOWED BY 50ML/HR INFUSION
     Dates: start: 20030904, end: 20030904
  10. FENOLDOPAM [Concomitant]
     Dosage: UNK
     Dates: start: 20030904, end: 20030904
  11. VERSED [Concomitant]
     Dosage: UNK
     Dates: start: 20030904, end: 20030904

REACTIONS (1)
  - BLOOD PRESSURE DECREASED [None]
